FAERS Safety Report 4788445-1 (Version None)
Quarter: 2005Q4

REPORT INFORMATION
  Report Type: 
  Country: None (occurrence: None)
  Receive Date: 20051005
  Receipt Date: 20050804
  Transmission Date: 20060501
  Serious: Yes (Other)
  Sender: FDA-Public Use
  Company Number: PHBS2005JP11406

PATIENT
  Sex: Female

DRUGS (2)
  1. VOLTAREN [Suspect]
     Route: 048
  2. VOLTAREN [Suspect]
     Route: 054

REACTIONS (3)
  - HEPATITIS [None]
  - OVERDOSE [None]
  - VIRAL INFECTION [None]
